FAERS Safety Report 8844159 (Version 3)
Quarter: 2013Q2

REPORT INFORMATION
  Report Type: Spontaneous
  Country: US (occurrence: US)
  Receive Date: 20121017
  Receipt Date: 20130521
  Transmission Date: 20140414
  Serious: Yes (Life-Threatening, Hospitalization, Other)
  Sender: FDA-Public Use
  Company Number: US-009507513-2010SP003008

PATIENT
  Age: 5 Year
  Sex: Male
  Weight: 32.5 kg

DRUGS (6)
  1. PEG-INTRON [Suspect]
     Indication: CHRONIC HEPATITIS C
     Dosage: UPDATE (14SEP2011) STRENGTH: 80MCG/0.5ML, SOLUTION
     Route: 058
     Dates: start: 20100107, end: 20100107
  2. PEG-INTRON [Suspect]
     Dosage: UPDATE (14SEP2011) STRENGTH: 80MCG/0.5ML, SOLUTION
     Route: 058
     Dates: start: 20100107, end: 20100107
  3. REBETOL [Suspect]
     Indication: CHRONIC HEPATITIS C
     Dosage: UPDATE (14SEP2011) STRENGTH: 40MG/ML SOLUTION
     Route: 048
     Dates: start: 20100107, end: 20100107
  4. JR TYLENOL METLTAWAYS [Suspect]
     Dosage: 400 MG, ONCE
     Dates: start: 20100107
  5. JR TYLENOL METLTAWAYS [Suspect]
     Dosage: 400 MG, ONCE
     Dates: start: 20100107
  6. ACETAMINOPHEN [Suspect]
     Dosage: 445 MG, ONCE
     Route: 054
     Dates: start: 20100107

REACTIONS (19)
  - Mitochondrial toxicity [Recovered/Resolved]
  - Shock [Recovered/Resolved]
  - Lactic acidosis [Recovered/Resolved]
  - Disseminated intravascular coagulation [Recovered/Resolved]
  - Multi-organ failure [Recovered/Resolved]
  - Hepatic failure [Recovered/Resolved]
  - Acute respiratory distress syndrome [Recovered/Resolved]
  - Pulmonary oedema [Recovered/Resolved]
  - Nephrogenic diabetes insipidus [Recovered/Resolved]
  - Generalised oedema [Recovered/Resolved]
  - Coma [Recovered/Resolved]
  - Electrolyte imbalance [Recovered/Resolved]
  - Renal failure [Recovered/Resolved]
  - Convulsion [Recovered/Resolved]
  - Pyrexia [Recovered/Resolved]
  - Headache [Recovered/Resolved]
  - Vomiting [Recovered/Resolved]
  - Rash maculo-papular [Recovered/Resolved]
  - Hepatic steatosis [Unknown]
